FAERS Safety Report 21324183 (Version 1)
Quarter: 2022Q3

REPORT INFORMATION
  Report Type: Spontaneous
  Country: US (occurrence: None)
  Receive Date: 20220911
  Receipt Date: 20220911
  Transmission Date: 20221027
  Serious: Yes (Death, Life-Threatening)
  Sender: FDA-Public Use
  Company Number: None

PATIENT
  Age: 68 Year
  Sex: Male
  Weight: 26.1 kg

DRUGS (1)
  1. XTANDI [Suspect]
     Active Substance: ENZALUTAMIDE
     Indication: Prostate cancer
     Dates: start: 20210701, end: 20220601

REACTIONS (5)
  - Computerised tomogram abnormal [None]
  - Renal mass [None]
  - Prostate cancer metastatic [None]
  - Metastases to spine [None]
  - Malignant neoplasm progression [None]

NARRATIVE: CASE EVENT DATE: 20220621
